FAERS Safety Report 9683972 (Version 2)
Quarter: 2013Q4

REPORT INFORMATION
  Report Type: Spontaneous
  Country: FR (occurrence: FR)
  Receive Date: 20131112
  Receipt Date: 20131115
  Transmission Date: 20140711
  Serious: Yes (Hospitalization, Other)
  Sender: FDA-Public Use
  Company Number: FR-PFIZER INC-2013321178

PATIENT
  Age: 93 Year
  Sex: Male

DRUGS (1)
  1. CORDARONE [Suspect]
     Indication: ATRIAL FIBRILLATION
     Dosage: UNK
     Route: 048
     Dates: start: 201204, end: 20121222

REACTIONS (4)
  - Hyponatraemia [Recovering/Resolving]
  - Anaemia macrocytic [Recovering/Resolving]
  - Hypothyroidism [Recovering/Resolving]
  - Cardiac failure [Unknown]
